FAERS Safety Report 21818714 (Version 1)
Quarter: 2023Q1

REPORT INFORMATION
  Report Type: Spontaneous
  Country: US (occurrence: None)
  Receive Date: 20230104
  Receipt Date: 20230104
  Transmission Date: 20230418
  Serious: Yes (Disabling)
  Sender: FDA-Public Use
  Company Number: None

PATIENT
  Age: 74 Year
  Sex: Female
  Weight: 38.7 kg

DRUGS (7)
  1. LAGEVRIO [Suspect]
     Active Substance: MOLNUPIRAVIR
     Indication: COVID-19
     Dosage: FREQUENCY : EVERY 12 HOURS;?
     Route: 048
     Dates: start: 20221209, end: 20221213
  2. KEPPRA [Concomitant]
     Active Substance: LEVETIRACETAM
  3. GABAPENTIN [Concomitant]
     Active Substance: GABAPENTIN
  4. RALOXIFENE [Concomitant]
     Active Substance: RALOXIFENE
  5. Vit. B-12 [Concomitant]
  6. CALCIUM [Concomitant]
     Active Substance: CALCIUM
  7. Vit. D [Concomitant]

REACTIONS (5)
  - Dizziness [None]
  - Dysstasia [None]
  - Gait inability [None]
  - Intentional product use issue [None]
  - Feeling abnormal [None]

NARRATIVE: CASE EVENT DATE: 20221210
